FAERS Safety Report 16858977 (Version 1)
Quarter: 2019Q3

REPORT INFORMATION
  Report Type: Spontaneous
  Country: IT (occurrence: IT)
  Receive Date: 20190926
  Receipt Date: 20190926
  Transmission Date: 20191005
  Serious: Yes (Hospitalization, Other)
  Sender: FDA-Public Use
  Company Number: IT-BAUSCH-BL-2019-055244

PATIENT
  Sex: Male

DRUGS (1)
  1. KYNTHEUM [Suspect]
     Active Substance: BRODALUMAB
     Indication: PRODUCT USED FOR UNKNOWN INDICATION
     Route: 065
     Dates: start: 20190603, end: 2019

REACTIONS (1)
  - Cerebrovascular accident [Recovered/Resolved]
